FAERS Safety Report 16866684 (Version 1)
Quarter: 2019Q3

REPORT INFORMATION
  Report Type: Report from Study
  Country: None (occurrence: US)
  Receive Date: 20190930
  Receipt Date: 20190930
  Transmission Date: 20191005
  Serious: Yes (Other)
  Sender: FDA-Public Use
  Company Number: US-ABBVIE-19K-163-2785578-00

PATIENT
  Sex: Female

DRUGS (2)
  1. HUMIRA [Suspect]
     Active Substance: ADALIMUMAB
     Route: 058
  2. HUMIRA [Suspect]
     Active Substance: ADALIMUMAB
     Indication: RHEUMATOID ARTHRITIS
     Route: 058

REACTIONS (6)
  - Large intestine perforation [Recovered/Resolved]
  - Large intestinal haemorrhage [Recovered/Resolved]
  - Gait disturbance [Unknown]
  - Gastrointestinal pain [Recovered/Resolved]
  - Hip arthroplasty [Not Recovered/Not Resolved]
  - Medical device site joint pain [Not Recovered/Not Resolved]

NARRATIVE: CASE EVENT DATE: 2011
